FAERS Safety Report 7793208-9 (Version None)
Quarter: 2011Q4

REPORT INFORMATION
  Report Type: 
  Country: None (occurrence: None)
  Receive Date: 20111003
  Receipt Date: 20110923
  Transmission Date: 20120403
  Serious: Yes (Hospitalization)
  Sender: FDA-Public Use
  Company Number: KR-ELI_LILLY_AND_COMPANY-KR201106007686

PATIENT
  Age: 58 Year
  Sex: Female

DRUGS (5)
  1. BYETTA [Suspect]
     Dosage: 5 UG, EACH EVENING
  2. INSULIN [Concomitant]
  3. ANALGESICS [Concomitant]
     Indication: ARTHRALGIA
  4. CORTICOSTEROIDS [Concomitant]
     Indication: ARTHRALGIA
  5. BYETTA [Suspect]
     Indication: TYPE 2 DIABETES MELLITUS
     Dosage: 5 UG, BID
     Route: 058
     Dates: start: 20110405

REACTIONS (3)
  - HYPERGLYCAEMIA [None]
  - ARTHRALGIA [None]
  - OFF LABEL USE [None]
